FAERS Safety Report 5836516-0 (Version None)
Quarter: 2008Q3

REPORT INFORMATION
  Report Type: 
  Country: None (occurrence: None)
  Receive Date: 20080729
  Receipt Date: 20080729
  Transmission Date: 20090109
  Serious: Yes (Other)
  Sender: FDA-Public Use
  Company Number: None

PATIENT
  Age: 14 Year
  Sex: Male
  Weight: 56.6996 kg

DRUGS (2)
  1. CLEAN AND CLEAR ACNE MEDICATION DAILY FACE WASH [Suspect]
     Indication: ACNE
     Dosage: USED ONE FULL DAY 2X TOP
     Route: 061
     Dates: start: 20080726, end: 20080726
  2. CLEAN AND CLEAR SPOT TREATMENT WITH SALICYLIC ACID 2% [Suspect]
     Indication: ACNE
     Dosage: USED ONE FULL DAY 3X TOP
     Route: 061
     Dates: start: 20080726, end: 20080726

REACTIONS (4)
  - APPLICATION SITE URTICARIA [None]
  - ERYTHEMA [None]
  - EYE SWELLING [None]
  - SWELLING FACE [None]
